FAERS Safety Report 12324749 (Version 1)
Quarter: 2016Q2

REPORT INFORMATION
  Report Type: Report from Study
  Country: US (occurrence: US)
  Receive Date: 20160502
  Receipt Date: 20160502
  Transmission Date: 20160815
  Serious: No
  Sender: FDA-Public Use
  Company Number: US-ABBVIE-15P-163-1424371-00

PATIENT
  Age: 59 Year
  Sex: Male
  Weight: 118.04 kg

DRUGS (4)
  1. ANDROGEL [Suspect]
     Active Substance: TESTOSTERONE
     Indication: BLOOD TESTOSTERONE DECREASED
     Route: 061
     Dates: end: 201506
  2. LEVOTHYROXINE. [Concomitant]
     Active Substance: LEVOTHYROXINE
     Indication: HYPOTHYROIDISM
  3. ANDROGEL [Suspect]
     Active Substance: TESTOSTERONE
     Indication: BLOOD TESTOSTERONE DECREASED
     Route: 061
     Dates: start: 201506, end: 20150702
  4. ANDROGEL [Suspect]
     Active Substance: TESTOSTERONE
     Route: 061
     Dates: start: 20150703

REACTIONS (1)
  - Blood testosterone decreased [Not Recovered/Not Resolved]

NARRATIVE: CASE EVENT DATE: 201506
